FAERS Safety Report 5580856-X (Version None)
Quarter: 2008Q1

REPORT INFORMATION
  Report Type: 
  Country: None (occurrence: None)
  Receive Date: 20080103
  Receipt Date: 20071217
  Transmission Date: 20080703
  Serious: Yes (Hospitalization)
  Sender: FDA-Public Use
  Company Number: US-BOEHRINGER INGELHEIM PHARMACEUTICALS, INC.-2007-DE-07388GD

PATIENT
  Age: 22 Year
  Sex: Female

DRUGS (11)
  1. TRAZODONE HCL [Suspect]
  2. TRAZODONE HCL [Suspect]
  3. RANITIDINE HCL [Suspect]
     Indication: HYPEREMESIS GRAVIDARUM
  4. ASPIRIN [Suspect]
  5. PROCHLORPERAZINE [Suspect]
     Indication: HYPEREMESIS GRAVIDARUM
  6. PROMETHAZINE [Suspect]
     Indication: HYPEREMESIS GRAVIDARUM
  7. DROPERIDOL [Suspect]
     Indication: HYPEREMESIS GRAVIDARUM
  8. FLUOXETINE HCL [Suspect]
  9. FLUOXETINE HCL [Suspect]
  10. ENOXAPARIN SODIUM [Concomitant]
     Indication: PULMONARY EMBOLISM
  11. DOLASETRON [Concomitant]
     Indication: NAUSEA

REACTIONS (5)
  - AKATHISIA [None]
  - DEPRESSION [None]
  - OVERDOSE [None]
  - SELF INJURIOUS BEHAVIOUR [None]
  - SUICIDAL IDEATION [None]
